FAERS Safety Report 24911706 (Version 2)
Quarter: 2025Q2

REPORT INFORMATION
  Report Type: Spontaneous
  Country: AU (occurrence: AU)
  Receive Date: 20250131
  Receipt Date: 20250609
  Transmission Date: 20250716
  Serious: Yes (Death, Other)
  Sender: RANBAXY
  Company Number: AU-SUN PHARMACEUTICAL INDUSTRIES LTD-2025R1-491176

PATIENT

DRUGS (7)
  1. LENALIDOMIDE [Suspect]
     Active Substance: LENALIDOMIDE
     Indication: Plasma cell myeloma refractory
     Route: 065
  2. BORTEZOMIB [Suspect]
     Active Substance: BORTEZOMIB
     Indication: Plasma cell myeloma refractory
     Route: 065
  3. DEXAMETHASONE [Suspect]
     Active Substance: DEXAMETHASONE
     Indication: Plasma cell myeloma refractory
     Route: 065
  4. THALIDOMIDE [Suspect]
     Active Substance: THALIDOMIDE
     Indication: Plasma cell myeloma refractory
     Route: 065
  5. CARFILZOMIB [Suspect]
     Active Substance: CARFILZOMIB
     Indication: Plasma cell myeloma refractory
     Route: 065
  6. MARIZOMIB [Suspect]
     Active Substance: MARIZOMIB
     Indication: Plasma cell myeloma refractory
     Route: 040
  7. POMALIDOMIDE [Suspect]
     Active Substance: POMALIDOMIDE
     Indication: Plasma cell myeloma refractory
     Dosage: UNK UNK, QD
     Route: 065

REACTIONS (16)
  - Cardio-respiratory arrest [Fatal]
  - Plasma cell myeloma refractory [Fatal]
  - Neuropathy peripheral [Unknown]
  - Neutropenia [Unknown]
  - Oedema peripheral [Unknown]
  - Pneumonia [Unknown]
  - Thrombocytopenia [Unknown]
  - Tumour lysis syndrome [Unknown]
  - Anaemia [Unknown]
  - Diarrhoea [Unknown]
  - Dyspnoea [Unknown]
  - Fatigue [Unknown]
  - Insomnia [Unknown]
  - White blood cell count decreased [Unknown]
  - Nausea [Unknown]
  - Therapy partial responder [Unknown]
